FAERS Safety Report 20183566 (Version 1)
Quarter: 2021Q4

REPORT INFORMATION
  Report Type: Spontaneous
  Country: US (occurrence: US)
  Receive Date: 20211214
  Receipt Date: 20211214
  Transmission Date: 20220304
  Serious: No
  Sender: FDA-Public Use
  Company Number: US-ABBVIE-20K-163-3653762-00

PATIENT
  Age: 81 Year
  Sex: Male
  Weight: 80.812 kg

DRUGS (1)
  1. IMBRUVICA [Suspect]
     Active Substance: IBRUTINIB
     Indication: Chronic lymphocytic leukaemia
     Dosage: 2 CAPSULE
     Route: 048
     Dates: start: 202010

REACTIONS (1)
  - Eye infection [Not Recovered/Not Resolved]

NARRATIVE: CASE EVENT DATE: 20201101
